FAERS Safety Report 7672287-3 (Version None)
Quarter: 2011Q3

REPORT INFORMATION
  Report Type: 
  Country: None (occurrence: None)
  Receive Date: 20110809
  Receipt Date: 20110805
  Transmission Date: 20111222
  Serious: Yes (Hospitalization, Other)
  Sender: FDA-Public Use
  Company Number: US-PFIZER INC-2010159576

PATIENT
  Sex: Female

DRUGS (15)
  1. CHANTIX [Suspect]
     Indication: SMOKING CESSATION THERAPY
     Dosage: STARTING AND CONTINUING PACK
     Route: 048
     Dates: start: 20071201, end: 20080701
  2. WELLBUTRIN SR [Concomitant]
     Indication: DEPRESSION
     Dosage: UNK
     Dates: start: 20040101, end: 20090101
  3. PREMARIN [Concomitant]
     Indication: MENOPAUSAL SYMPTOMS
     Dosage: UNK
     Dates: start: 20050101, end: 20090101
  4. CIPROFLOXACIN [Concomitant]
     Indication: INFECTION
     Dosage: UNK
     Dates: start: 20040101, end: 20090101
  5. XANAX [Concomitant]
     Indication: ANXIETY
     Dosage: UNK
     Dates: start: 19950101
  6. FOSAMAX [Concomitant]
     Indication: OSTEOPOROSIS
     Dosage: UNK
     Dates: start: 20040101, end: 20090101
  7. NEXIUM [Concomitant]
     Indication: GASTROOESOPHAGEAL REFLUX DISEASE
     Dosage: UNK
     Dates: start: 19950101
  8. NASONEX [Concomitant]
     Indication: HYPERSENSITIVITY
     Dosage: UNK
     Dates: start: 20060101, end: 20080101
  9. FLEXERIL [Concomitant]
     Indication: MUSCLE RELAXANT THERAPY
     Dosage: UNK
     Dates: start: 20060101, end: 20090101
  10. LIPITOR [Concomitant]
     Indication: CORONARY ARTERY DISEASE
     Dosage: UNK
     Dates: start: 20050101, end: 20080101
  11. EFFEXOR [Concomitant]
     Indication: DEPRESSION
     Dosage: UNK
     Dates: start: 20060101, end: 20090101
  12. FLEXERIL [Concomitant]
     Indication: MYALGIA
     Dosage: UNK
     Dates: start: 20000101
  13. PREVACID [Concomitant]
     Indication: GASTROOESOPHAGEAL REFLUX DISEASE
     Dosage: UNK
     Dates: start: 20040101, end: 20090101
  14. SINGULAIR [Concomitant]
     Indication: ASTHMA
     Dosage: UNK
     Dates: start: 20060101, end: 20090101
  15. LISINOPRIL [Concomitant]
     Indication: HYPERTENSION
     Dosage: UNK
     Dates: start: 20060101, end: 20080101

REACTIONS (7)
  - DEPRESSION [None]
  - MENTAL DISORDER [None]
  - AGGRESSION [None]
  - ANXIETY [None]
  - SUICIDE ATTEMPT [None]
  - INTENTIONAL OVERDOSE [None]
  - SUICIDAL IDEATION [None]
